FAERS Safety Report 7019968-2 (Version None)
Quarter: 2010Q3

REPORT INFORMATION
  Report Type: 
  Country: None (occurrence: None)
  Receive Date: 20100927
  Receipt Date: 20100907
  Transmission Date: 20110219
  Serious: Yes (Hospitalization)
  Sender: FDA-Public Use
  Company Number: JPI-P-012125

PATIENT
  Age: 36 Year
  Sex: Female
  Weight: 104.3273 kg

DRUGS (10)
  1. XYREM [Suspect]
     Indication: CATAPLEXY
     Dosage: 2 IN 1 D, ORAL; 7.5 GM (3.75 GM, 2 IN 1 D), ORAL
     Route: 048
     Dates: start: 20050908
  2. IMIPRAMINE [Concomitant]
  3. TOPIRAMATE [Concomitant]
  4. ATENOLOL [Concomitant]
  5. LISINOPRIL [Concomitant]
  6. DIVALPROEX SODIUM [Concomitant]
  7. VENLAFAXINE [Concomitant]
  8. ESOMEPRAZOLE [Concomitant]
  9. METHYLPHENIDATE [Concomitant]
  10. SIMVASTATIN [Concomitant]

REACTIONS (2)
  - CEREBROVASCULAR ACCIDENT [None]
  - DIABETES MELLITUS [None]
